FAERS Safety Report 12879938 (Version 1)
Quarter: 2016Q4

REPORT INFORMATION
  Report Type: Spontaneous
  Country: US (occurrence: US)
  Receive Date: 20161021
  Receipt Date: 20161021
  Transmission Date: 20170207
  Serious: No
  Sender: FDA-Public Use
  Company Number: None

PATIENT
  Sex: Male

DRUGS (1)
  1. HUMIRA [Suspect]
     Active Substance: ADALIMUMAB
     Indication: CROHN^S DISEASE
     Dosage: 160MG DAY 1, 80 MG DAY 15 LOADING DOSE SUBCUTANEOUSLY
     Route: 058
     Dates: start: 20160901

REACTIONS (5)
  - Diarrhoea [None]
  - Impaired work ability [None]
  - Malaise [None]
  - Insomnia [None]
  - Hypoaesthesia [None]
